FAERS Safety Report 7504386-0 (Version None)
Quarter: 2011Q2

REPORT INFORMATION
  Report Type: 
  Country: None (occurrence: None)
  Receive Date: 20110525
  Receipt Date: 20110422
  Transmission Date: 20111010
  Serious: Yes (Hospitalization)
  Sender: FDA-Public Use
  Company Number: PHHY2011US41951

PATIENT
  Sex: Male

DRUGS (9)
  1. ASPIRIN [Concomitant]
  2. FLOMAX [Concomitant]
  3. VITAMIN D [Concomitant]
  4. ASCORBIC ACID [Concomitant]
     Dosage: UNK
  5. TASIGNA [Suspect]
     Dosage: 200 MG, BID
     Route: 048
     Dates: start: 20100901
  6. SIMVASTATIN [Concomitant]
     Dosage: UNK
  7. RAMIPRIL [Concomitant]
  8. METOPROLOL TARTRATE [Concomitant]
  9. PROSCAR [Concomitant]

REACTIONS (2)
  - CARDIAC DISORDER [None]
  - DYSPNOEA [None]
